FAERS Safety Report 24982681 (Version 1)
Quarter: 2025Q1

REPORT INFORMATION
  Report Type: Spontaneous
  Country: FR (occurrence: FR)
  Receive Date: 20250218
  Receipt Date: 20250218
  Transmission Date: 20250409
  Serious: Yes (Congenital Anomaly)
  Sender: SANDOZ
  Company Number: None

PATIENT
  Sex: Female
  Weight: 2.21 kg

DRUGS (7)
  1. AZITHROMYCIN [Suspect]
     Active Substance: AZITHROMYCIN
     Indication: Foetal exposure during pregnancy
     Route: 064
     Dates: start: 20240131, end: 20240830
  2. CLOFAZIMINE [Suspect]
     Active Substance: CLOFAZIMINE
     Indication: Foetal exposure during pregnancy
     Route: 064
     Dates: start: 20240403
  3. COTRIMOXAZOLE [Suspect]
     Active Substance: SULFAMETHOXAZOLE\TRIMETHOPRIM
     Indication: Foetal exposure during pregnancy
     Route: 064
     Dates: start: 20240131
  4. ETHAMBUTOL HYDROCHLORIDE [Suspect]
     Active Substance: ETHAMBUTOL HYDROCHLORIDE
     Indication: Foetal exposure during pregnancy
     Route: 064
     Dates: start: 20240131, end: 20240830
  5. KIVEXA [Suspect]
     Active Substance: ABACAVIR SULFATE\LAMIVUDINE
     Indication: Foetal exposure during pregnancy
     Route: 064
     Dates: start: 20231128, end: 20240830
  6. NORVIR [Suspect]
     Active Substance: RITONAVIR
     Indication: Foetal exposure during pregnancy
     Route: 064
     Dates: start: 20231128, end: 20240830
  7. PREZISTA [Suspect]
     Active Substance: DARUNAVIR ETHANOLATE
     Indication: Foetal exposure during pregnancy
     Route: 064
     Dates: start: 20231128, end: 20240830

REACTIONS (1)
  - Hydrocephalus [Not Recovered/Not Resolved]

NARRATIVE: CASE EVENT DATE: 20240417
